FAERS Safety Report 16782344 (Version 1)
Quarter: 2019Q3

REPORT INFORMATION
  Report Type: Spontaneous
  Country: US (occurrence: US)
  Receive Date: 20190906
  Receipt Date: 20190906
  Transmission Date: 20191005
  Serious: No
  Sender: FDA-Public Use
  Company Number: US-ALEXION PHARMACEUTICALS INC.-A201913368

PATIENT
  Age: 25 Year
  Sex: Male
  Weight: 69.1 kg

DRUGS (1)
  1. STRENSIQ [Suspect]
     Active Substance: ASFOTASE ALFA
     Indication: HYPOPHOSPHATASIA
     Dosage: 60 MG, SIX TIMES/WEEK
     Route: 065

REACTIONS (4)
  - Body temperature decreased [Unknown]
  - Blood bilirubin increased [Unknown]
  - Depression [Recovered/Resolved]
  - Blood alkaline phosphatase increased [Unknown]

NARRATIVE: CASE EVENT DATE: 20190228
